FAERS Safety Report 15516463 (Version 2)
Quarter: 2018Q4

REPORT INFORMATION
  Report Type: Spontaneous
  Country: US (occurrence: US)
  Receive Date: 20181017
  Receipt Date: 20181214
  Transmission Date: 20190205
  Serious: No
  Sender: FDA-Public Use
  Company Number: US-ASTRAZENECA-2018SF23178

PATIENT
  Age: 686 Month
  Sex: Male
  Weight: 73.9 kg

DRUGS (8)
  1. BREO ELLIPTA [Concomitant]
     Active Substance: FLUTICASONE FUROATE\VILANTEROL TRIFENATATE
     Route: 055
  2. PEPSIN [Concomitant]
     Active Substance: PEPSIN
     Indication: HIATUS HERNIA
     Route: 048
     Dates: start: 1995
  3. PREDNISONE. [Concomitant]
     Active Substance: PREDNISONE
     Indication: DRUG INEFFECTIVE
     Route: 048
  4. PEPSIN [Concomitant]
     Active Substance: PEPSIN
     Indication: DYSPEPSIA
     Route: 048
     Dates: start: 1995
  5. FASENRA [Suspect]
     Active Substance: BENRALIZUMAB
     Indication: ASTHMA
     Route: 058
     Dates: start: 201806
  6. DILTIAZEM. [Concomitant]
     Active Substance: DILTIAZEM
     Indication: ATRIAL FIBRILLATION
     Route: 048
  7. CLARITEN [Concomitant]
     Route: 048
  8. ALBUTEROL. [Concomitant]
     Active Substance: ALBUTEROL
     Dosage: 90.0MG AS REQUIRED
     Route: 055

REACTIONS (2)
  - Arthralgia [Recovered/Resolved]
  - Joint swelling [Not Recovered/Not Resolved]

NARRATIVE: CASE EVENT DATE: 201808
